FAERS Safety Report 5976898-2 (Version None)
Quarter: 2008Q4

REPORT INFORMATION
  Report Type: 
  Country: None (occurrence: None)
  Receive Date: 20081201
  Receipt Date: 20081201
  Transmission Date: 20090506
  Serious: Yes (Other)
  Sender: FDA-Public Use
  Company Number: None

PATIENT
  Sex: Male
  Weight: 50.8029 kg

DRUGS (3)
  1. METOPROLOL TARTRATE [Suspect]
     Indication: CORONARY ARTERY BYPASS
     Dosage: 50MG BID PO 6-7 YRS
     Route: 048
  2. METOPROLOL TARTRATE [Suspect]
     Indication: CORONARY ARTERY DISEASE
     Dosage: 50MG BID PO 6-7 YRS
     Route: 048
  3. LOPRESSOR [Suspect]

REACTIONS (3)
  - ASTHENIA [None]
  - NAUSEA [None]
  - PRODUCT QUALITY ISSUE [None]
